FAERS Safety Report 8123042-1 (Version None)
Quarter: 2012Q1

REPORT INFORMATION
  Report Type: 
  Country: None (occurrence: None)
  Receive Date: 20120206
  Receipt Date: 20120123
  Transmission Date: 20120608
  Serious: Yes (Hospitalization, Other)
  Sender: FDA-Public Use
  Company Number: 2012MA001018

PATIENT
  Sex: Male
  Weight: 58.9676 kg

DRUGS (4)
  1. DIGOXIN [Suspect]
     Indication: PRODUCT USED FOR UNKNOWN INDICATION
     Dosage: 0.125 MG;QD;PO
     Route: 048
     Dates: start: 20071030, end: 20090412
  2. METOCLOPRAMIDE [Concomitant]
  3. VERAPAMIL EXTENDED-RELEASE [Concomitant]
  4. WARFARIN SODIUM [Concomitant]

REACTIONS (16)
  - ELECTROCARDIOGRAM QT PROLONGED [None]
  - BUNDLE BRANCH BLOCK RIGHT [None]
  - MYOCARDIAL INFARCTION [None]
  - NAUSEA [None]
  - HYPERTENSION [None]
  - ATRIAL FLUTTER [None]
  - HEART RATE INCREASED [None]
  - ASTHENIA [None]
  - CARDIOMEGALY [None]
  - DIZZINESS [None]
  - ELECTROCARDIOGRAM ABNORMAL [None]
  - HEART RATE IRREGULAR [None]
  - ATRIOVENTRICULAR BLOCK [None]
  - ATRIAL FIBRILLATION [None]
  - ELECTROCARDIOGRAM ST-T SEGMENT ABNORMAL [None]
  - BLOOD GLUCOSE INCREASED [None]
